FAERS Safety Report 12082786 (Version 1)
Quarter: 2016Q1

REPORT INFORMATION
  Report Type: Spontaneous
  Country: US (occurrence: None)
  Receive Date: 20160216
  Receipt Date: 20160216
  Transmission Date: 20160526
  Serious: No
  Sender: FDA-Public Use
  Company Number: None

PATIENT
  Age: 55 Year
  Sex: Female

DRUGS (1)
  1. ORTHOVISC [Suspect]
     Active Substance: HYALURONIC ACID
     Dates: start: 20160105

REACTIONS (1)
  - Pain [None]

NARRATIVE: CASE EVENT DATE: 20160121
